FAERS Safety Report 12859347 (Version 2)
Quarter: 2016Q4

REPORT INFORMATION
  Report Type: Spontaneous
  Country: IT (occurrence: IT)
  Receive Date: 20161018
  Receipt Date: 20161114
  Transmission Date: 20170207
  Serious: Yes (Death, Hospitalization)
  Sender: FDA-Public Use
  Company Number: PHHY2016IT142604

PATIENT
  Age: 43 Year
  Sex: Female

DRUGS (3)
  1. AFINITOR [Suspect]
     Active Substance: EVEROLIMUS
     Indication: BREAST CANCER
     Dosage: 10 MG, QD
     Route: 048
     Dates: start: 20160915, end: 20161008
  2. ZOMETA [Concomitant]
     Active Substance: ZOLEDRONIC ACID
     Indication: PRODUCT USED FOR UNKNOWN INDICATION
     Dosage: 4 MG, UNK
     Route: 065
     Dates: start: 20160412
  3. EXEMESTANE ACCORD HEALTHCARE [Concomitant]
     Indication: PRODUCT USED FOR UNKNOWN INDICATION
     Dosage: ONE POSOLOGIC UNIT, QD
     Route: 048
     Dates: start: 20160915, end: 20161008

REACTIONS (12)
  - Dyspnoea [Fatal]
  - Fatigue [Fatal]
  - Pneumonitis [Fatal]
  - Palpitations [Fatal]
  - Pyrexia [Fatal]
  - Asthenia [Fatal]
  - Malaise [Fatal]
  - General physical health deterioration [Unknown]
  - Hyperglycaemia [Fatal]
  - Mucosal inflammation [Fatal]
  - Hypotension [Unknown]
  - Sepsis [Not Recovered/Not Resolved]

NARRATIVE: CASE EVENT DATE: 20161010
